FAERS Safety Report 4408072-5 (Version None)
Quarter: 2004Q3

REPORT INFORMATION
  Report Type: 
  Country: None (occurrence: None)
  Receive Date: 20040721
  Receipt Date: 20040713
  Transmission Date: 20050211
  Serious: Yes (Other)
  Sender: FDA-Public Use
  Company Number: DEU-2004-0000791

PATIENT
  Age: 81 Year
  Sex: Female

DRUGS (2)
  1. OXYGESIC 20 MG (OXYCODONE HYDROCHLORIDE) CR TABLET [Suspect]
     Dosage: 20 MG , BID; ORAL
     Route: 048
  2. MARCUMAR [Suspect]
     Dosage: 0.5  TABLET, DAILY, ORAL
     Route: 048

REACTIONS (4)
  - DRUG INTERACTION [None]
  - INTERNATIONAL NORMALISED RATIO DECREASED [None]
  - PROTHROMBIN TIME SHORTENED [None]
  - TREATMENT NONCOMPLIANCE [None]
